FAERS Safety Report 9382239 (Version 1)
Quarter: 2013Q3

REPORT INFORMATION
  Report Type: Spontaneous
  Country: US (occurrence: US)
  Receive Date: 20130703
  Receipt Date: 20130703
  Transmission Date: 20140515
  Serious: No
  Sender: FDA-Public Use
  Company Number: US-UPSHER-SMITH LABORATORIES, INC.-12001426

PATIENT
  Age: 55 Year
  Sex: Female

DRUGS (3)
  1. DIVIGEL [Suspect]
     Indication: HOT FLUSH
     Dosage: 0.5 MG, ONCE
     Route: 061
     Dates: start: 20120620, end: 20120620
  2. PROGESTERONE [Concomitant]
     Dosage: UNK
     Route: 048
     Dates: start: 20120606
  3. MULTIVITAMIN                       /01229101/ [Concomitant]
     Dosage: UNK

REACTIONS (4)
  - Presyncope [Recovered/Resolved]
  - Abdominal pain [Recovered/Resolved]
  - Nausea [Recovered/Resolved]
  - Muscle spasms [Recovered/Resolved]
